FAERS Safety Report 17561178 (Version 1)
Quarter: 2020Q1

REPORT INFORMATION
  Report Type: Spontaneous
  Country: US (occurrence: US)
  Receive Date: 20200319
  Receipt Date: 20200319
  Transmission Date: 20200409
  Serious: Yes (Other)
  Sender: FDA-Public Use
  Company Number: None

PATIENT
  Age: 64 Year
  Sex: Female
  Weight: 81 kg

DRUGS (14)
  1. GASTREX [Concomitant]
  2. LITHIUM CARBONATE. [Concomitant]
     Active Substance: LITHIUM CARBONATE
  3. NEXIUM [Concomitant]
     Active Substance: ESOMEPRAZOLE MAGNESIUM
  4. DI=ACID [Concomitant]
  5. VITAMIN D3 [Concomitant]
     Active Substance: CHOLECALCIFEROL
  6. VIVITROL [Suspect]
     Active Substance: NALTREXONE
     Indication: ALCOHOLISM
     Dosage: ?          QUANTITY:1 INJECTION(S);OTHER FREQUENCY:ONCE 30 DAYS;?
     Route: 030
     Dates: start: 20200304, end: 20200319
  7. CYMBALTA [Concomitant]
     Active Substance: DULOXETINE HYDROCHLORIDE
  8. SYMVASTATIN [Concomitant]
  9. ALO VERA JUICE [Concomitant]
  10. TRAZODONE [Concomitant]
     Active Substance: TRAZODONE HYDROCHLORIDE
  11. LAMICTAL [Concomitant]
     Active Substance: LAMOTRIGINE
  12. CLONAZEPAM. [Concomitant]
     Active Substance: CLONAZEPAM
  13. FISH OIL CAPSULES [Concomitant]
  14. VITAMIN K2 [Concomitant]
     Active Substance: MENAQUINONE 6

REACTIONS (2)
  - Injection site mass [None]
  - Adverse drug reaction [None]

NARRATIVE: CASE EVENT DATE: 20200311
